FAERS Safety Report 6371261-7 (Version None)
Quarter: 2009Q3

REPORT INFORMATION
  Report Type: 
  Country: None (occurrence: None)
  Receive Date: 20090923
  Receipt Date: 20071227
  Transmission Date: 20100115
  Serious: No
  Sender: FDA-Public Use
  Company Number: US-ASTRAZENECA-2006UW27893

PATIENT
  Age: 24 Year
  Sex: Female
  Weight: 143.6 kg

DRUGS (22)
  1. SEROQUEL [Suspect]
     Indication: BIPOLAR DISORDER
     Route: 048
     Dates: start: 20000201, end: 20060101
  2. SEROQUEL [Suspect]
     Indication: DEPRESSION
     Route: 048
     Dates: start: 20000201, end: 20060101
  3. SEROQUEL [Suspect]
     Indication: ANXIETY
     Route: 048
     Dates: start: 20000201, end: 20060101
  4. SEROQUEL [Suspect]
     Dosage: 100MG-800MG DAILY
     Route: 048
     Dates: start: 20020705
  5. SEROQUEL [Suspect]
     Dosage: 100MG-800MG DAILY
     Route: 048
     Dates: start: 20020705
  6. SEROQUEL [Suspect]
     Dosage: 100MG-800MG DAILY
     Route: 048
     Dates: start: 20020705
  7. KLONOPIN [Concomitant]
     Dosage: STRENGTH-  0.5MG, 1MG, 2MG.  DOSE-  1MG-4MG DAILY AS NEEDED.
  8. TOPAMAX [Concomitant]
     Dosage: STRENGTH-  200MG, 300MG, 400MG.  DOSE-  400-500MG DAILY
  9. PROZAC [Concomitant]
     Dosage: STRENGTH-  20MG, 40MG, 60MG.  DOSE-  20MG-60MG DAILY.
  10. PREVACID [Concomitant]
     Indication: GASTROOESOPHAGEAL REFLUX DISEASE
     Dosage: STRENGTH-  10MG, 15MG, 30MG  DOSE-  10-30MG DAILY.
     Route: 048
  11. ABILIFY [Concomitant]
     Dosage: 15 MG-50 MG DAILY
  12. LISINOPRIL [Concomitant]
     Route: 048
  13. CYMBALTA [Concomitant]
     Route: 048
  14. LAMICTAL [Concomitant]
     Dosage: STRENGTH-  100MG, 200MG.  DOSE-  200MG DAILY.
     Route: 048
  15. TOPROL-XL [Concomitant]
     Route: 048
  16. SINGULAIR [Concomitant]
     Route: 048
     Dates: end: 20070220
  17. VALTREX [Concomitant]
     Route: 048
  18. SYMBYAX [Concomitant]
     Dosage: 12MG/25MG  1 CAPSULE DAILY
     Route: 048
  19. ACYCLOVIR [Concomitant]
     Dosage: 800MG-1200MG DAILY
     Route: 048
  20. ACYCLOVIR [Concomitant]
     Route: 048
  21. ALPRAZOLAM [Concomitant]
     Dosage: STRENGTH-  1MG, 2MG.  DOSE-  4-8MG DAILY
     Route: 048
  22. FLUCONAZOLE [Concomitant]
     Route: 048

REACTIONS (4)
  - DIABETES MELLITUS [None]
  - DIABETES MELLITUS INADEQUATE CONTROL [None]
  - OBESITY [None]
  - TYPE 2 DIABETES MELLITUS [None]
